FAERS Safety Report 9292509 (Version 4)
Quarter: 2013Q4

REPORT INFORMATION
  Report Type: Report from Study
  Country: JP (occurrence: None)
  Receive Date: 20130513
  Receipt Date: 20131030
  Transmission Date: 20140711
  Serious: Yes (Hospitalization)
  Sender: FDA-Public Use
  Company Number: ABR_00912_2013

PATIENT
  Age: 17 Year
  Sex: Male
  Weight: 48 kg

DRUGS (12)
  1. GLIADEL [Suspect]
     Indication: GLIOBLASTOMA
     Dosage: INTRACEREBRAL
     Dates: start: 20130326, end: 20130404
  2. RINDERON /00008501/ (UNKNOWN) [Concomitant]
  3. CEFAZOLIN SODIUM [Concomitant]
  4. ULTIVA [Concomitant]
  5. FENTANYL [Concomitant]
  6. PENTAGIN/ 00052103/ (UNKNOWN) [Concomitant]
  7. KEPPRA [Concomitant]
  8. CELECOX [Concomitant]
  9. LOBU [Concomitant]
  10. GASTER/00706001/ (UNKNOWN) [Concomitant]
  11. MAGLAX [Concomitant]
  12. LAXOBERON [Concomitant]

REACTIONS (6)
  - Gait disturbance [None]
  - Post procedural complication [None]
  - Hemiplegia [None]
  - Cyst [None]
  - Impaired healing [None]
  - Procedural site reaction [None]
